FAERS Safety Report 16446825 (Version 1)
Quarter: 2019Q2

REPORT INFORMATION
  Report Type: Spontaneous
  Country: CA (occurrence: CA)
  Receive Date: 20190618
  Receipt Date: 20190618
  Transmission Date: 20190711
  Serious: Yes (Other)
  Sender: FDA-Public Use
  Company Number: CA-FERRINGPH-2019FE03555

PATIENT

DRUGS (2)
  1. PICO-SALAX [Suspect]
     Active Substance: ANHYDROUS CITRIC ACID\MAGNESIUM OXIDE\SODIUM PICOSULFATE
     Indication: BOWEL PREPARATION
     Dosage: 1 DF, ONCE/SINGLE
     Route: 048
  2. KEPPRA [Concomitant]
     Active Substance: LEVETIRACETAM
     Dosage: UNKNOWN
     Route: 065

REACTIONS (4)
  - Vomiting [Recovered/Resolved]
  - Paraesthesia oral [Recovered/Resolved]
  - Incorrect dose administered [Recovered/Resolved]
  - Paraesthesia [Recovered/Resolved]
